FAERS Safety Report 9841249 (Version 1)
Quarter: 2013Q4

REPORT INFORMATION
  Report Type: Spontaneous
  Country: US (occurrence: None)
  Receive Date: 20131219
  Receipt Date: 20131219
  Transmission Date: 20140711
  Serious: Yes (Other)
  Sender: FDA-Public Use
  Company Number: 163-20785-11111563

PATIENT
  Age: 69 Year
  Sex: Male
  Weight: 105.7 kg

DRUGS (11)
  1. THALOMID [Suspect]
     Indication: PLASMA CELL MYELOMA
     Dosage: 50 MG, 1 IN 1 D, PO
     Route: 048
     Dates: start: 200509, end: 200602
  2. COUMADIN (WARFARIN SODIUM) (UNKNOWN) [Concomitant]
  3. ZOMETA (ZOLEDRONIC ACID) (UNKNOWN) [Concomitant]
  4. ALLOPURINOL (ALLOPURINOL) (UNKNOWN) [Concomitant]
  5. VITAMIN B-12 (CYANOCOBALAMIN) (UNKNOWN) [Concomitant]
  6. VITAMIN D (ERGOCALCIFEROL) (UNKNOWN) [Concomitant]
  7. CYMBALTA (DULOXETINE HYDROCHLORIDE) (UNKNOWN) [Concomitant]
  8. LIPITOR (ATORVASTATIN) (UNKNOWN) [Concomitant]
  9. POTASSIUM CITRATE ER (POTASSIUM CITRATE) (UNKNOWN) [Concomitant]
  10. METOPROLOL SUCC ER (METOPROLOL SUCCINATE) (UNKNOWN) [Concomitant]
  11. MULTIVITAMINS (MULTIVITAMINS) (UNKNOWN) [Concomitant]

REACTIONS (1)
  - Rash [None]
